APPROVED DRUG PRODUCT: DICLOFENAC SODIUM
Active Ingredient: DICLOFENAC SODIUM
Strength: 25MG
Dosage Form/Route: TABLET, DELAYED RELEASE;ORAL
Application: A216548 | Product #001 | TE Code: AB
Applicant: RUBICON RESEARCH LTD
Approved: May 11, 2023 | RLD: No | RS: No | Type: RX